FAERS Safety Report 5289704-9 (Version None)
Quarter: 2007Q2

REPORT INFORMATION
  Report Type: 
  Country: None (occurrence: None)
  Receive Date: 20070406
  Receipt Date: 20070322
  Transmission Date: 20071010
  Serious: Yes (Hospitalization)
  Sender: FDA-Public Use
  Company Number: US-JNJFOC-20070305767

PATIENT
  Sex: Female
  Weight: 31 kg

DRUGS (2)
  1. REMICADE [Suspect]
     Indication: CROHN'S DISEASE
     Route: 042
  2. ALBUTEROL [Concomitant]
     Indication: ASTHMA

REACTIONS (1)
  - VARICELLA [None]
